FAERS Safety Report 4513701-1 (Version None)
Quarter: 2004Q4

REPORT INFORMATION
  Report Type: 
  Country: None (occurrence: None)
  Receive Date: 20041130
  Receipt Date: 20040827
  Transmission Date: 20050328
  Serious: No
  Sender: FDA-Public Use
  Company Number: US-GLAXOSMITHKLINE-A0523801A

PATIENT
  Age: 54 Year
  Sex: Male

DRUGS (9)
  1. WELLBUTRIN XL [Suspect]
     Indication: DEPRESSION
     Dosage: 300MG PER DAY
     Route: 048
     Dates: start: 20040101
  2. SPIRIVA [Concomitant]
  3. NIASPAN [Concomitant]
  4. CRESTOR [Concomitant]
  5. MOBIC [Concomitant]
  6. ZYLOPRIM [Concomitant]
  7. LOTENSIN [Concomitant]
  8. TRENTAL [Concomitant]
  9. TRICOR [Concomitant]

REACTIONS (2)
  - IRRITABILITY [None]
  - NAUSEA [None]
